FAERS Safety Report 7817612-5 (Version None)
Quarter: 2011Q4

REPORT INFORMATION
  Report Type: 
  Country: None (occurrence: None)
  Receive Date: 20111017
  Receipt Date: 20111013
  Transmission Date: 20120403
  Serious: Yes (Other)
  Sender: FDA-Public Use
  Company Number: PHHO2010US04748

PATIENT
  Sex: Male
  Weight: 75 kg

DRUGS (2)
  1. GILENYA [Suspect]
     Dosage: 0.5 MG DAILY
     Route: 048
     Dates: start: 20100115, end: 20100325
  2. GILENYA [Suspect]
     Indication: MULTIPLE SCLEROSIS
     Dosage: DOSE BLINDED
     Route: 048
     Dates: start: 20091109, end: 20100114

REACTIONS (2)
  - SQUAMOUS CELL CARCINOMA OF SKIN [None]
  - PAPULE [None]
